FAERS Safety Report 5066298-4 (Version None)
Quarter: 2006Q3

REPORT INFORMATION
  Report Type: 
  Country: None (occurrence: None)
  Receive Date: 20060719
  Receipt Date: 20050804
  Transmission Date: 20061208
  Serious: Yes (Other)
  Sender: FDA-Public Use
  Company Number: K200501042

PATIENT
  Sex: Female

DRUGS (3)
  1. TIGAN [Suspect]
     Indication: NAUSEA
     Dosage: 200 MG, QD, INTRAMUSCULAR
     Route: 030
     Dates: start: 20050701, end: 20050801
  2. TIGAN [Suspect]
     Indication: VOMITING
     Dosage: 200 MG, QD, INTRAMUSCULAR
     Route: 030
     Dates: start: 20050701, end: 20050801
  3. DILANTIN [Concomitant]

REACTIONS (1)
  - GRAND MAL CONVULSION [None]
